FAERS Safety Report 5767106-6 (Version None)
Quarter: 2008Q2

REPORT INFORMATION
  Report Type: 
  Country: None (occurrence: None)
  Receive Date: 20080612
  Receipt Date: 20080602
  Transmission Date: 20081010
  Serious: Yes (Hospitalization)
  Sender: FDA-Public Use
  Company Number: DE-JNJFOC-20080602232

PATIENT
  Age: 69 Year
  Sex: Female

DRUGS (3)
  1. TRAMADOL HCL [Suspect]
     Indication: DRUG USE FOR UNKNOWN INDICATION
     Route: 065
  2. TRANSTEC PRO [Suspect]
     Indication: SPINAL OSTEOARTHRITIS
     Route: 062
  3. CORTISON [Concomitant]

REACTIONS (2)
  - OEDEMA [None]
  - VOMITING [None]
